FAERS Safety Report 24551158 (Version 2)
Quarter: 2024Q4

REPORT INFORMATION
  Report Type: Spontaneous
  Country: GR (occurrence: GR)
  Receive Date: 20241025
  Receipt Date: 20241105
  Transmission Date: 20250115
  Serious: Yes (Life-Threatening, Hospitalization)
  Sender: NOVARTIS
  Company Number: GR-002147023-NVSC2024GR205127

PATIENT
  Age: 3 Month
  Sex: Female
  Weight: 5.4 kg

DRUGS (5)
  1. ZOLGENSMA [Suspect]
     Active Substance: ONASEMNOGENE ABEPARVOVEC-XIOI
     Indication: Spinal muscular atrophy
     Dosage: UNK, ONCE/SINGLE
     Route: 042
     Dates: start: 20240906, end: 20240906
  2. PREDNISOLONE [Concomitant]
     Active Substance: PREDNISOLONE
     Indication: Product used for unknown indication
     Dosage: UNK, QD (1 MG/KG)
     Route: 065
  3. NYSTATIN [Concomitant]
     Active Substance: NYSTATIN
     Indication: Product used for unknown indication
     Dosage: UNK
     Route: 065
     Dates: start: 20241014, end: 20241025
  4. NUSINERSEN [Concomitant]
     Active Substance: NUSINERSEN
     Indication: Product used for unknown indication
     Dosage: UNK
     Route: 065
     Dates: start: 20241021
  5. TARGOCID [Concomitant]
     Active Substance: TEICOPLANIN
     Indication: Product used for unknown indication
     Dosage: UNK
     Route: 065
     Dates: start: 20241014, end: 20241022

REACTIONS (3)
  - Sepsis [Recovering/Resolving]
  - Respiratory distress [Recovering/Resolving]
  - Escherichia infection [Recovering/Resolving]

NARRATIVE: CASE EVENT DATE: 20241010
